FAERS Safety Report 7095492-6 (Version None)
Quarter: 2010Q4

REPORT INFORMATION
  Report Type: 
  Country: None (occurrence: None)
  Receive Date: 20101111
  Receipt Date: 20101102
  Transmission Date: 20110411
  Serious: Yes (Other)
  Sender: FDA-Public Use
  Company Number: US-ELI_LILLY_AND_COMPANY-US201011000797

PATIENT
  Age: 79 Year
  Sex: Female

DRUGS (2)
  1. ALIMTA [Suspect]
     Indication: NON-SMALL CELL LUNG CANCER
     Dosage: 500 MG/M2, DAY 1 OF 21 DAY CYCLE
  2. AVASTIN [Concomitant]

REACTIONS (2)
  - OEDEMA PERIPHERAL [None]
  - PROTEINURIA [None]
